FAERS Safety Report 7435184-4 (Version None)
Quarter: 2011Q2

REPORT INFORMATION
  Report Type: 
  Country: None (occurrence: None)
  Receive Date: 20110425
  Receipt Date: 20110419
  Transmission Date: 20111010
  Serious: Yes (Death, Hospitalization)
  Sender: FDA-Public Use
  Company Number: PHHY2011US33147

PATIENT
  Age: 32 Year
  Sex: Female

DRUGS (5)
  1. MYFORTIC [Suspect]
     Indication: SYSTEMIC LUPUS ERYTHEMATOSUS
     Dosage: 01 G, BID
  2. FOSCARNET [Concomitant]
  3. GANCICLOVIR [Concomitant]
  4. PREDNISONE [Concomitant]
  5. METHYLPREDNISOLONE [Concomitant]

REACTIONS (14)
  - BACTERAEMIA [None]
  - NEOPLASM MALIGNANT [None]
  - RENAL IMPAIRMENT [None]
  - CONVULSION [None]
  - MUSCULAR WEAKNESS [None]
  - DEVICE RELATED SEPSIS [None]
  - CEREBRAL ISCHAEMIA [None]
  - HYPOAESTHESIA FACIAL [None]
  - RENAL FAILURE [None]
  - CENTRAL NERVOUS SYSTEM LESION [None]
  - TONGUE PARALYSIS [None]
  - CYTOMEGALOVIRUS INFECTION [None]
  - EYELID PTOSIS [None]
  - PUPIL FIXED [None]
